FAERS Safety Report 14482155 (Version 2)
Quarter: 2018Q1

REPORT INFORMATION
  Report Type: Report from Study
  Country: US (occurrence: US)
  Receive Date: 20180202
  Receipt Date: 20180312
  Transmission Date: 20180509
  Serious: Yes (Death)
  Sender: FDA-Public Use
  Company Number: US-ACTELION-A-US2018-166658

PATIENT
  Age: 27 Year
  Sex: Female

DRUGS (6)
  1. ASA [Concomitant]
     Active Substance: ASPIRIN
     Dosage: 81 MG, UNK
  2. LASIX [Concomitant]
     Active Substance: FUROSEMIDE
     Dosage: 20 MG, QD
  3. OPSUMIT [Suspect]
     Active Substance: MACITENTAN
     Indication: PULMONARY HYPERTENSION
     Dosage: 10 MG, QD
     Route: 048
     Dates: start: 201609
  4. CILOSTAZOL. [Concomitant]
     Active Substance: CILOSTAZOL
  5. KCL [Concomitant]
     Active Substance: POTASSIUM CHLORIDE
  6. MVI [Concomitant]
     Active Substance: VITAMINS

REACTIONS (2)
  - Pulmonary hypertension [Fatal]
  - Respiratory failure [Fatal]
